FAERS Safety Report 17567849 (Version 1)
Quarter: 2020Q1

REPORT INFORMATION
  Report Type: Spontaneous
  Country: DE (occurrence: DE)
  Receive Date: 20200320
  Receipt Date: 20200320
  Transmission Date: 20200409
  Serious: Yes (Other)
  Sender: FDA-Public Use
  Company Number: DE-ASTRAZENECA-2020SE37779

PATIENT
  Sex: Male

DRUGS (2)
  1. QUETIAPIN [Suspect]
     Active Substance: QUETIAPINE
     Dosage: 300.0MG UNKNOWN
     Route: 048
  2. TAVOR [Concomitant]
     Dosage: APPROXIMATELY 9 YEARS (APPROXIMATELY 4 TABLETS A WEEK)

REACTIONS (9)
  - Fear [Recovered/Resolved]
  - Paranoia [Recovered/Resolved]
  - Gangrene [Unknown]
  - Psychiatric symptom [Unknown]
  - Panic disorder [Recovered/Resolved]
  - Procedural pain [Recovered/Resolved]
  - Insomnia [Unknown]
  - Night sweats [Unknown]
  - Anxiety [Recovered/Resolved]
